FAERS Safety Report 6308828-8 (Version None)
Quarter: 2009Q3

REPORT INFORMATION
  Report Type: 
  Country: None (occurrence: None)
  Receive Date: 20090813
  Receipt Date: 20080924
  Transmission Date: 20100115
  Serious: No
  Sender: FDA-Public Use
  Company Number: US-ALLERGAN-0811255US

PATIENT
  Age: 78 Year
  Sex: Female

DRUGS (2)
  1. COMBIGAN [Suspect]
     Indication: DRUG USE FOR UNKNOWN INDICATION
     Dosage: 2 GTT, BID
     Route: 047
  2. COSOPT [Concomitant]

REACTIONS (3)
  - DECREASED APPETITE [None]
  - MALAISE [None]
  - WEIGHT DECREASED [None]
